FAERS Safety Report 4959079-0 (Version None)
Quarter: 2006Q1

REPORT INFORMATION
  Report Type: 
  Country: None (occurrence: None)
  Receive Date: 20060331
  Receipt Date: 20060321
  Transmission Date: 20060701
  Serious: Yes (Other)
  Sender: FDA-Public Use
  Company Number: US-JNJFOC-20060305279

PATIENT
  Sex: Female

DRUGS (2)
  1. REMICADE [Suspect]
     Indication: POLYMYALGIA RHEUMATICA
     Route: 042
  2. MOTRIN [Suspect]
     Indication: DRUG USE FOR UNKNOWN INDICATION
     Route: 048

REACTIONS (1)
  - GASTROINTESTINAL ULCER [None]
